FAERS Safety Report 5243861-9 (Version None)
Quarter: 2007Q1

REPORT INFORMATION
  Report Type: 
  Country: None (occurrence: None)
  Receive Date: 20070215
  Receipt Date: 20070205
  Transmission Date: 20070707
  Serious: Yes (Hospitalization, Other)
  Sender: FDA-Public Use
  Company Number: 2007SP002304

PATIENT
  Age: 69 Year
  Sex: Male

DRUGS (11)
  1. TEMODAL [Suspect]
     Indication: GLIOBLASTOMA
     Dosage: SEE IMAGE
     Dates: start: 20060823, end: 20060827
  2. TEMODAL [Suspect]
     Indication: GLIOBLASTOMA
     Dosage: SEE IMAGE
     Dates: start: 20060921, end: 20060925
  3. TEMODAL [Suspect]
     Indication: GLIOBLASTOMA
     Dosage: SEE IMAGE
     Dates: start: 20061025, end: 20061029
  4. RADIOTHERAPY (THERAPEUTIC RADIOPHARMACEUTICALS) [Suspect]
     Indication: GLIOBLASTOMA
     Dates: start: 20060601, end: 20060801
  5. CONCOR [Concomitant]
  6. NOVODIGAL [Concomitant]
  7. RAMIPRIL [Concomitant]
  8. SIMVASTATIN [Concomitant]
  9. PANTOZOL [Concomitant]
  10. MELPERON [Concomitant]
  11. CLEXANE [Concomitant]

REACTIONS (3)
  - BRONCHITIS [None]
  - PNEUMONIA [None]
  - RESPIRATORY TRACT INFECTION [None]
